FAERS Safety Report 4914763-X (Version None)
Quarter: 2006Q1

REPORT INFORMATION
  Report Type: 
  Country: None (occurrence: None)
  Receive Date: 20060216
  Receipt Date: 20050928
  Transmission Date: 20060701
  Serious: Yes (Death)
  Sender: FDA-Public Use
  Company Number: US-MERCK-0509USA04822

PATIENT
  Age: 42 Year
  Sex: Male
  Weight: 144 kg

DRUGS (3)
  1. VIOXX [Suspect]
     Indication: ARTHRITIS
     Route: 048
     Dates: start: 20040201
  2. ALEVE [Concomitant]
     Route: 065
  3. ALKA-SELTZER [Concomitant]
     Route: 065

REACTIONS (4)
  - CARDIOVASCULAR DISORDER [None]
  - DEATH [None]
  - DYSPNOEA [None]
  - HEART RATE INCREASED [None]
